FAERS Safety Report 5399138-4 (Version None)
Quarter: 2007Q3

REPORT INFORMATION
  Report Type: 
  Country: None (occurrence: None)
  Receive Date: 20070725
  Receipt Date: 20070725
  Transmission Date: 20080115
  Serious: Yes (Hospitalization)
  Sender: FDA-Public Use
  Company Number: None

PATIENT
  Sex: Female
  Weight: 82.7815 kg

DRUGS (10)
  1. BORTEZOMIB [Suspect]
     Indication: NON-SMALL CELL LUNG CANCER
     Dosage: 0.7 MG/M2 IV DAY 1, 4, 8,11
     Route: 042
     Dates: start: 20070601, end: 20070702
  2. CARBOPLATIN [Suspect]
     Indication: NON-SMALL CELL LUNG CANCER
     Dosage: AUC=6 IV Q21 DAYS
     Route: 042
     Dates: start: 20070601, end: 20070622
  3. DOCETAXEL [Suspect]
     Indication: NON-SMALL CELL LUNG CANCER
     Dosage: 60 MG/M2 IV Q21 DAYS
     Route: 042
     Dates: start: 20070601, end: 20070622
  4. MOTRIN [Concomitant]
  5. VICODIN [Concomitant]
  6. COMPAZINE [Concomitant]
  7. DECADRON [Concomitant]
  8. KYTRIL [Concomitant]
  9. ZOFRAN [Concomitant]
  10. XANAX [Concomitant]

REACTIONS (6)
  - ATELECTASIS [None]
  - CHEST DISCOMFORT [None]
  - DISEASE PROGRESSION [None]
  - DYSPNOEA [None]
  - NEOPLASM MALIGNANT [None]
  - PLEURAL EFFUSION [None]
